FAERS Safety Report 8217176-0 (Version None)
Quarter: 2012Q1

REPORT INFORMATION
  Report Type: 
  Country: None (occurrence: None)
  Receive Date: 20120319
  Receipt Date: 20120313
  Transmission Date: 20120608
  Serious: No
  Sender: FDA-Public Use
  Company Number: US-BIOGENIDEC-2012BI009381

PATIENT
  Sex: Male

DRUGS (2)
  1. TYSABRI [Suspect]
     Indication: MULTIPLE SCLEROSIS
     Route: 042
     Dates: start: 20070226
  2. BACLOFEN PO [Concomitant]
     Indication: MULTIPLE SCLEROSIS
     Dates: start: 20110101

REACTIONS (7)
  - SINUSITIS [None]
  - MOBILITY DECREASED [None]
  - FALL [None]
  - PYREXIA [None]
  - DRUG EFFECT DECREASED [None]
  - MULTIPLE SCLEROSIS [None]
  - TOOTH ABSCESS [None]
